FAERS Safety Report 5130592-9 (Version None)
Quarter: 2006Q4

REPORT INFORMATION
  Report Type: 
  Country: None (occurrence: None)
  Receive Date: 20061017
  Receipt Date: 20061017
  Transmission Date: 20070319
  Serious: Yes (Hospitalization)
  Sender: FDA-Public Use
  Company Number: None

PATIENT
  Sex: Female
  Weight: 61.2 kg

DRUGS (12)
  1. CETUXIMAB 400 MG/ M2, BRISTOL MYERS SQUIBB [Suspect]
     Indication: CERVIX CARCINOMA
     Dosage: 680 MG  DAY 1  IV
     Route: 042
     Dates: start: 20060707
  2. CETUXIMAB, 230 MG/M2, BRISTOL MYERS SQUIBB [Suspect]
     Indication: CERVIX CARCINOMA
     Dosage: 425 MG  WEEKLY  IV
     Route: 042
     Dates: start: 20060713
  3. CETUXIMAB, 230 MG/M2, BRISTOL MYERS SQUIBB [Suspect]
     Indication: CERVIX CARCINOMA
     Dosage: 425 MG  WEEKLY  IV
     Route: 042
     Dates: start: 20060720
  4. CETUXIMAB, 230 MG/M2, BRISTOL MYERS SQUIBB [Suspect]
     Indication: CERVIX CARCINOMA
     Dosage: 425 MG  WEEKLY  IV
     Route: 042
     Dates: start: 20060803
  5. CETUXIMAB, 230 MG/M2, BRISTOL MYERS SQUIBB [Suspect]
     Indication: CERVIX CARCINOMA
     Dosage: 425 MG  WEEKLY  IV
     Route: 042
     Dates: start: 20060814
  6. OXYCONTIN [Concomitant]
  7. OXYCODONE HCL [Concomitant]
  8. ONDANSETRON [Concomitant]
  9. LOMOTIL [Concomitant]
  10. VENLAFAXIINE HCL [Concomitant]
  11. LEVOTHYROXINE SODIUM [Concomitant]
  12. TIOTROPIUM [Concomitant]

REACTIONS (17)
  - ABDOMINAL PAIN [None]
  - ABDOMINAL TENDERNESS [None]
  - ALANINE AMINOTRANSFERASE INCREASED [None]
  - ASPARTATE AMINOTRANSFERASE INCREASED [None]
  - BLOOD BILIRUBIN INCREASED [None]
  - CHOLELITHIASIS [None]
  - DIARRHOEA [None]
  - DILATATION INTRAHEPATIC DUCT ACQUIRED [None]
  - ELECTROLYTE IMBALANCE [None]
  - ENTERITIS [None]
  - HYPOXIA [None]
  - ILEUS [None]
  - INTESTINAL OBSTRUCTION [None]
  - NAUSEA [None]
  - ORAL INTAKE REDUCED [None]
  - PELVIC PAIN [None]
  - VOMITING [None]
